FAERS Safety Report 17055158 (Version 4)
Quarter: 2020Q4

REPORT INFORMATION
  Report Type: Report from Study
  Country: AT (occurrence: AT)
  Receive Date: 20191120
  Receipt Date: 20201214
  Transmission Date: 20210113
  Serious: Yes (Hospitalization)
  Sender: FDA-Public Use
  Company Number: AT-MYLANLABS-2019M1111988

PATIENT
  Age: 70 Year
  Sex: Female
  Weight: 52 kg

DRUGS (23)
  1. EXEMESTANE. [Suspect]
     Active Substance: EXEMESTANE
     Indication: BREAST CANCER METASTATIC
  2. TRASTUZUMAB. [Suspect]
     Active Substance: TRASTUZUMAB
     Indication: BREAST CANCER METASTATIC
     Dosage: MOST RECENT DOSE PRIOR TO THE EVENT: 01/APR/2019
     Route: 042
     Dates: start: 20181205
  3. LETROZOLE. [Suspect]
     Active Substance: LETROZOLE
     Indication: BREAST CANCER METASTATIC
  4. TRASTUZUMAB. [Suspect]
     Active Substance: TRASTUZUMAB
     Indication: HER2 POSITIVE BREAST CANCER
     Dosage: MOST RECENT DOSE PRIOR TO THE EVENT: 21/AUG/2018
     Route: 042
     Dates: start: 20180731
  5. LETROZOLE. [Suspect]
     Active Substance: LETROZOLE
     Indication: HER2 POSITIVE BREAST CANCER
     Dosage: MOST RECENT DOSE ON APR/2019
     Route: 048
     Dates: start: 20181205
  6. NOVALGIN (METAMIZOLE SODIUM) [Concomitant]
     Active Substance: METAMIZOLE SODIUM
     Dosage: UNK
     Route: 065
     Dates: start: 20180807
  7. CIPRALEX [Concomitant]
     Active Substance: ESCITALOPRAM OXALATE
     Dosage: UNK
     Route: 065
     Dates: start: 20190515
  8. LAEVOLAC [Concomitant]
     Active Substance: LACTULOSE
     Indication: CONSTIPATION
     Dosage: UNK
     Route: 065
     Dates: start: 20181227
  9. PANTOLOC                           /01263201/ [Concomitant]
     Active Substance: PANTOPRAZOLE SODIUM
     Dosage: UNK
     Route: 065
  10. TRASTUZUMAB. [Suspect]
     Active Substance: TRASTUZUMAB
     Indication: BREAST CANCER
  11. ANASTROZOLE. [Suspect]
     Active Substance: ANASTROZOLE
     Indication: BREAST CANCER METASTATIC
  12. EXEMESTANE. [Suspect]
     Active Substance: EXEMESTANE
     Indication: HER2 POSITIVE BREAST CANCER
     Dosage: IN MAY/2019, MOST RECENT DOSE
     Route: 048
     Dates: start: 201904
  13. PERTUZUMAB. [Suspect]
     Active Substance: PERTUZUMAB
     Indication: HER2 POSITIVE BREAST CANCER
     Dosage: MOST RECENT DOSE PRIOR TO THE EVENT: 21/AUG/2018
     Route: 042
     Dates: start: 20180731
  14. PERTUZUMAB. [Suspect]
     Active Substance: PERTUZUMAB
     Indication: BREAST CANCER METASTATIC
  15. ZYRTEC [Concomitant]
     Active Substance: CETIRIZINE HYDROCHLORIDE
     Indication: PRURITUS
     Dosage: UNK
     Route: 065
     Dates: start: 20181227
  16. ANASTROZOLE. [Suspect]
     Active Substance: ANASTROZOLE
     Indication: HER2 POSITIVE BREAST CANCER
     Dosage: MOST RECENT DOSE 05/DEC/2018
     Route: 048
     Dates: start: 20181009
  17. DAFLON                             /01026201/ [Concomitant]
     Active Substance: DIOSMIN\HESPERIDIN
     Indication: OEDEMA PERIPHERAL
     Dosage: UNK
     Route: 065
  18. ULSAL [Concomitant]
     Active Substance: RANITIDINE HYDROCHLORIDE
     Dosage: UNK
     Route: 065
     Dates: start: 20181002, end: 20190401
  19. TRITTICO [Concomitant]
     Active Substance: TRAZODONE HYDROCHLORIDE
     Dosage: UNK
     Route: 065
     Dates: start: 20180615
  20. XANOR [Concomitant]
     Active Substance: ALPRAZOLAM
     Dosage: UNK
     Route: 065
     Dates: start: 20180615
  21. LOVENOX [Concomitant]
     Active Substance: ENOXAPARIN SODIUM
     Dosage: UNK
     Route: 065
     Dates: start: 20180828, end: 20190615
  22. FENISTIL [Concomitant]
     Active Substance: DIMETHINDENE
     Dosage: UNK
     Route: 065
     Dates: start: 20181002, end: 20190401
  23. PASPERTIN                          /00041902/ [Concomitant]
     Active Substance: METOCLOPRAMIDE HYDROCHLORIDE
     Dosage: UNK
     Route: 065
     Dates: start: 20180807

REACTIONS (5)
  - Vertigo [Recovering/Resolving]
  - Nausea [Recovering/Resolving]
  - Rash [Recovering/Resolving]
  - Headache [Not Recovered/Not Resolved]
  - Somnolence [Not Recovered/Not Resolved]

NARRATIVE: CASE EVENT DATE: 20190415
